FAERS Safety Report 15899817 (Version 5)
Quarter: 2019Q2

REPORT INFORMATION
  Report Type: Spontaneous
  Country: US (occurrence: US)
  Receive Date: 20190201
  Receipt Date: 20190620
  Transmission Date: 20190711
  Serious: No
  Sender: FDA-Public Use
  Company Number: US-PFIZER INC-2019046122

PATIENT
  Age: 45 Year
  Sex: Female

DRUGS (2)
  1. XELJANZ [Suspect]
     Active Substance: TOFACITINIB CITRATE
     Dosage: 5 MG, 2X/DAY[ON FLARE DAYS]
  2. XELJANZ [Suspect]
     Active Substance: TOFACITINIB CITRATE
     Dosage: 5 MG, DAILY (MOSTLY TAKES JUST DAILY)

REACTIONS (5)
  - Condition aggravated [Unknown]
  - Joint swelling [Unknown]
  - Product dose omission [Unknown]
  - Arthralgia [Unknown]
  - Intentional product misuse [Unknown]
